FAERS Safety Report 6552478-5 (Version None)
Quarter: 2010Q1

REPORT INFORMATION
  Report Type: 
  Country: None (occurrence: None)
  Receive Date: 20100126
  Receipt Date: 20100118
  Transmission Date: 20100710
  Serious: Yes (Death, Other)
  Sender: FDA-Public Use
  Company Number: US-AMGEN-QUU386419

PATIENT
  Sex: Male

DRUGS (2)
  1. NPLATE [Suspect]
     Indication: THROMBOCYTOPENIA
     Dates: start: 20090212, end: 20090506
  2. WINRHO [Concomitant]

REACTIONS (2)
  - DEATH [None]
  - THERAPEUTIC RESPONSE DECREASED [None]
